FAERS Safety Report 24961891 (Version 1)
Quarter: 2025Q1

REPORT INFORMATION
  Report Type: Spontaneous
  Country: US (occurrence: None)
  Receive Date: 20250212
  Receipt Date: 20250212
  Transmission Date: 20250408
  Serious: Yes (Hospitalization)
  Sender: FDA-CTU
  Company Number: None

PATIENT
  Age: 61 Year
  Sex: Female
  Weight: 75.9 kg

DRUGS (2)
  1. BOTOX COSMETIC [Suspect]
     Active Substance: ONABOTULINUMTOXINA
     Indication: Skin cosmetic procedure
     Route: 030
     Dates: start: 20250102, end: 20250102
  2. SERTRALINE [Concomitant]
     Active Substance: SERTRALINE HYDROCHLORIDE
     Dates: start: 20241117

REACTIONS (11)
  - Chest discomfort [None]
  - Mouth swelling [None]
  - Pharyngeal swelling [None]
  - Hypersensitivity [None]
  - Tremor [None]
  - Asthenia [None]
  - Dysphagia [None]
  - Weight decreased [None]
  - Hypophagia [None]
  - Paraesthesia [None]
  - Vision blurred [None]

NARRATIVE: CASE EVENT DATE: 20250102
